FAERS Safety Report 4450376-4 (Version None)
Quarter: 2004Q3

REPORT INFORMATION
  Report Type: 
  Country: None (occurrence: None)
  Receive Date: 20040915
  Receipt Date: 20040910
  Transmission Date: 20050211
  Serious: Yes (Other)
  Sender: FDA-Public Use
  Company Number: 002674

PATIENT
  Age: 62 Year
  Sex: Female

DRUGS (3)
  1. MEDROXYPROGESTERONE ACETATE [Suspect]
     Dates: start: 20010123, end: 20011118
  2. PREMARIN [Suspect]
     Dates: start: 19940302, end: 20011118
  3. PROMETRIUM [Suspect]
     Dates: start: 20031008

REACTIONS (1)
  - BREAST CANCER [None]
